FAERS Safety Report 21821232 (Version 1)
Quarter: 2023Q1

REPORT INFORMATION
  Report Type: Spontaneous
  Country: US (occurrence: US)
  Receive Date: 20230105
  Receipt Date: 20230105
  Transmission Date: 20230418
  Serious: Yes (Other)
  Sender: FDA-Public Use
  Company Number: US-STRIDES ARCOLAB LIMITED-2022SP009891

PATIENT
  Age: 67 Year
  Sex: Female

DRUGS (23)
  1. AMOXICILLIN [Suspect]
     Active Substance: AMOXICILLIN
     Indication: Helicobacter infection
     Dosage: 1000 MILLIGRAM, BID, TRIPLE THERAPY
     Route: 065
  2. AMOXICILLIN [Suspect]
     Active Substance: AMOXICILLIN
     Dosage: 1000 MILLIGRAM, BID, 10-DAY SEQUENTIAL THERAPY; FOR THE FIRST 5 DAYS
     Route: 065
  3. AMOXICILLIN [Suspect]
     Active Substance: AMOXICILLIN
     Dosage: 1000 MILLIGRAM, BID
     Route: 065
  4. CLARITHROMYCIN [Suspect]
     Active Substance: CLARITHROMYCIN
     Indication: Helicobacter infection
     Dosage: 250 MILLIGRAM, BID, TRIPLE THERAPY
     Route: 065
  5. CLARITHROMYCIN [Suspect]
     Active Substance: CLARITHROMYCIN
     Dosage: 500 MILLIGRAM, BID 10-DAY SEQUENTIAL THERAPY
     Route: 065
  6. METRONIDAZOLE [Suspect]
     Active Substance: METRONIDAZOLE
     Indication: Helicobacter infection
     Dosage: 500 MILLIGRAM, BID 10-DAY SEQUENTIAL THERAPY
     Route: 065
  7. METRONIDAZOLE [Suspect]
     Active Substance: METRONIDAZOLE
     Dosage: 250 MILLIGRAM, QID
     Route: 065
  8. OMEPRAZOLE [Suspect]
     Active Substance: OMEPRAZOLE
     Indication: Helicobacter infection
     Dosage: 20 MILLIGRAM PER DAY COURSE OF LOAD THERAPY
     Route: 065
  9. OMEPRAZOLE [Suspect]
     Active Substance: OMEPRAZOLE
     Dosage: 20 MILLIGRAM, BID
     Route: 065
  10. OMEPRAZOLE [Suspect]
     Active Substance: OMEPRAZOLE
     Dosage: 20 MILLIGRAM, BID
     Route: 065
  11. DOXYCYCLINE [Suspect]
     Active Substance: DOXYCYCLINE
     Indication: Helicobacter infection
     Dosage: 100 MILLIGRAM, BID COURSE OF LOAD THERAPY
     Route: 065
  12. DOXYCYCLINE [Suspect]
     Active Substance: DOXYCYCLINE
     Dosage: 100 MILLIGRAM, BID MODIFIED LOAD THERAPY
     Route: 065
  13. TETRACYCLINE [Suspect]
     Active Substance: TETRACYCLINE
     Indication: Helicobacter infection
     Dosage: 500 MILLIGRAM, QID
     Route: 065
  14. LEVOFLOXACIN [Suspect]
     Active Substance: LEVOFLOXACIN
     Indication: Helicobacter infection
     Dosage: 500 MILLIGRAM PER DAY COURSE OF LOAD THERAPY
     Route: 065
  15. LEVOFLOXACIN [Suspect]
     Active Substance: LEVOFLOXACIN
     Dosage: 250 MILLIGRAM, BID
     Route: 065
  16. LANSOPRAZOLE [Suspect]
     Active Substance: LANSOPRAZOLE
     Indication: Helicobacter infection
     Dosage: 30 MILLIGRAM PER DAY TRIPLE THERAPY
     Route: 065
  17. LANSOPRAZOLE [Suspect]
     Active Substance: LANSOPRAZOLE
     Dosage: 15 MILLIGRAM, BID, 10-DAY SEQUENTIAL THERAPY
     Route: 065
  18. NITAZOXANIDE [Suspect]
     Active Substance: NITAZOXANIDE
     Indication: Helicobacter infection
     Dosage: 500 MILLIGRAM, BID COURSE OF LOAD THERAPY
     Route: 065
  19. NITAZOXANIDE [Suspect]
     Active Substance: NITAZOXANIDE
     Dosage: 500 MILLIGRAM, BID MODIFIED LOAD THERAPY
     Route: 065
  20. RIFABUTIN [Suspect]
     Active Substance: RIFABUTIN
     Indication: Helicobacter infection
     Dosage: 300 MILLIGRAM PER DAY
     Route: 065
  21. MOXIFLOXACIN [Suspect]
     Active Substance: MOXIFLOXACIN
     Indication: Helicobacter infection
     Dosage: 400 MILLIGRAM PER DAY MODIFIED LOAD THERAPY
     Route: 065
  22. PANTOPRAZOLE [Suspect]
     Active Substance: PANTOPRAZOLE
     Indication: Helicobacter infection
     Dosage: 40 MILLIGRAM PER DAY MODIFIED LOAD THERAPY
     Route: 065
  23. BISMUTH SUBSALICYLATE [Concomitant]
     Active Substance: BISMUTH SUBSALICYLATE
     Indication: Helicobacter infection
     Dosage: 300 MILLIGRAM, QID
     Route: 065

REACTIONS (2)
  - Treatment failure [Unknown]
  - Off label use [Unknown]
